FAERS Safety Report 14880016 (Version 4)
Quarter: 2018Q3

REPORT INFORMATION
  Report Type: Spontaneous
  Country: ES (occurrence: ES)
  Receive Date: 20180511
  Receipt Date: 20180816
  Transmission Date: 20181010
  Serious: Yes (Hospitalization, Other)
  Sender: FDA-Public Use
  Company Number: ES-AUROBINDO-AUR-APL-2018-025085

PATIENT
  Age: 87 Year
  Sex: Male

DRUGS (14)
  1. IPRATROPIUM/ALBUTEROL [Suspect]
     Active Substance: ALBUTEROL\IPRATROPIUM
     Indication: PRODUCT USED FOR UNKNOWN INDICATION
     Dosage: 4 DOSAGE FORM, 1  DF (Q6H, DRUG INTERVAL DOSAGE UNIT NUMBER:6HOUR)
     Route: 045
  2. MIRABEGRON [Suspect]
     Active Substance: MIRABEGRON
     Indication: PRODUCT USED FOR UNKNOWN INDICATION
     Dosage: 1 DOSAGE FORM, ONCE A DAY
     Route: 065
  3. FLUOXETINE [Suspect]
     Active Substance: FLUOXETINE HYDROCHLORIDE
     Indication: PRODUCT USED FOR UNKNOWN INDICATION
     Dosage: 20 MILLIGRAM, ONCE A DAY
     Route: 065
  4. LATANOPROST  EYE DROPS, SOLUTION [Suspect]
     Active Substance: LATANOPROST
     Indication: PRODUCT USED FOR UNKNOWN INDICATION
     Dosage: 2 GTT, ONCE A DAY
     Route: 065
  5. QUETIAPIN MYLAN [Suspect]
     Active Substance: QUETIAPINE FUMARATE
     Indication: PRODUCT USED FOR UNKNOWN INDICATION
     Dosage: 75 MILLIGRAM, ONCE A DAY (25 MG, TID (2?2?1))
     Route: 065
  6. BUDESONIDE. [Suspect]
     Active Substance: BUDESONIDE
     Dosage: 1 DF, BID, DRUG INTERVAL DOSAGE UNIT NUMBER:1 DAY
     Route: 045
  7. APIXABAN [Suspect]
     Active Substance: APIXABAN
     Indication: PRODUCT USED FOR UNKNOWN INDICATION
     Dosage: 2.5 MG, BID, DRUG INTERVAL DOSAGE UNIT NUMBER:1 DAY
     Route: 065
  8. FUROSEMIDA MYLAN [Suspect]
     Active Substance: FUROSEMIDE
     Indication: PRODUCT USED FOR UNKNOWN INDICATION
     Dosage: 40 MILLIGRAM, ONCE A DAY
     Route: 065
  9. FUROSEMIDA MYLAN [Suspect]
     Active Substance: FUROSEMIDE
     Dosage: 1 DOSAGE FORM
     Route: 065
  10. APIXABAN [Suspect]
     Active Substance: APIXABAN
     Indication: CEREBROVASCULAR ACCIDENT PROPHYLAXIS
  11. FENTANYL. [Suspect]
     Active Substance: FENTANYL
     Indication: DYSPNOEA
     Dosage: UNK
     Route: 048
  12. BUDESONIDE. [Suspect]
     Active Substance: BUDESONIDE
     Indication: PRODUCT USED FOR UNKNOWN INDICATION
     Dosage: UNK, BID (2)
     Route: 045
  13. VILDAGLIPTIN [Suspect]
     Active Substance: VILDAGLIPTIN
     Indication: PRODUCT USED FOR UNKNOWN INDICATION
     Dosage: 1 DOSAGE FORM, ONCE A DAY (1 DF, QD)
     Route: 065
  14. VILDAGLIPTIN [Suspect]
     Active Substance: VILDAGLIPTIN
     Indication: TYPE 2 DIABETES MELLITUS
     Dosage: 50 MILLIGRAM (50 MG, Q12H)
     Route: 048

REACTIONS (16)
  - Haemoglobin abnormal [Unknown]
  - Oedema peripheral [Unknown]
  - Respiratory tract infection [Unknown]
  - Lung infection [Unknown]
  - Product use in unapproved indication [Unknown]
  - Heart rate abnormal [Unknown]
  - C-reactive protein abnormal [Unknown]
  - Arrhythmia [Unknown]
  - Peripheral venous disease [Unknown]
  - Blood pressure abnormal [Unknown]
  - White blood cell count abnormal [Unknown]
  - Tachypnoea [Unknown]
  - Respiratory failure [Recovered/Resolved]
  - Dyspnoea [Recovered/Resolved]
  - Bronchiectasis [Unknown]
  - Bone marrow oedema [Unknown]
